FAERS Safety Report 9624689 (Version 1)
Quarter: 2013Q4

REPORT INFORMATION
  Report Type: Spontaneous
  Country: FR (occurrence: FR)
  Receive Date: 20131015
  Receipt Date: 20131015
  Transmission Date: 20140711
  Serious: Yes (Other)
  Sender: FDA-Public Use
  Company Number: FR-UCBSA-099754

PATIENT
  Age: 80 Year
  Sex: Female

DRUGS (2)
  1. KEPPRA [Suspect]
     Indication: GRAND MAL CONVULSION
     Route: 048
     Dates: start: 20130611, end: 20130626
  2. GARDENAL [Concomitant]
     Dates: start: 201306

REACTIONS (1)
  - Hepatitis cholestatic [Recovering/Resolving]
